FAERS Safety Report 7741354-8 (Version None)
Quarter: 2011Q3

REPORT INFORMATION
  Report Type: 
  Country: None (occurrence: None)
  Receive Date: 20110909
  Receipt Date: 20110902
  Transmission Date: 20111222
  Serious: No
  Sender: FDA-Public Use
  Company Number: US-PFIZER INC-2011208217

PATIENT
  Sex: Male
  Weight: 83.447 kg

DRUGS (3)
  1. ZOMETA [Concomitant]
     Dosage: 4 MG /5 ML
  2. VALTREX [Concomitant]
     Dosage: 500 MG, UNK
  3. SUTENT [Suspect]
     Dosage: 12.5 MG, 4X/DAY
     Route: 048

REACTIONS (1)
  - SLEEP DISORDER [None]
